FAERS Safety Report 8958890 (Version 1)
Quarter: 2012Q4

REPORT INFORMATION
  Report Type: Report from Study
  Country: CN (occurrence: CN)
  Receive Date: 20121212
  Receipt Date: 20121212
  Transmission Date: 20130627
  Serious: Yes (Death)
  Sender: FDA-Public Use
  Company Number: CN-ASTELLAS-2012JP011496

PATIENT
  Age: 17 Year
  Sex: Male

DRUGS (1)
  1. TACROLIMUS CAPSULES [Suspect]
     Indication: BONE MARROW TRANSPLANT
     Dosage: 1.5 mg, bid
     Route: 048
     Dates: start: 20120401

REACTIONS (2)
  - Off label use [Unknown]
  - Death [Fatal]
